FAERS Safety Report 6175332-X (Version None)
Quarter: 2009Q2

REPORT INFORMATION
  Report Type: 
  Country: None (occurrence: None)
  Receive Date: 20090429
  Receipt Date: 20090416
  Transmission Date: 20091009
  Serious: Yes (Hospitalization)
  Sender: FDA-Public Use
  Company Number: 237842J08USA

PATIENT
  Age: 36 Year
  Sex: Female

DRUGS (9)
  1. REBIF [Suspect]
     Indication: MULTIPLE SCLEROSIS
     Dosage: 8.8 MCG, 3 IN 1 WEEKS, SUBCUTANEOUS
     Route: 058
     Dates: start: 20080815, end: 20080818
  2. REBIF [Suspect]
     Indication: MULTIPLE SCLEROSIS
     Dosage: 8.8 MCG, 3 IN 1 WEEKS, SUBCUTANEOUS
     Route: 058
     Dates: start: 20080906
  3. SOLU-MEDROL [Suspect]
     Indication: MULTIPLE SCLEROSIS
     Dosage: INTRAVENOUS
     Route: 042
     Dates: start: 20080801, end: 20080801
  4. CYMBALTA [Suspect]
     Indication: DEPRESSION
     Dosage: 60 MG, 1 IN 1 DAYS, ORAL
     Route: 048
  5. CYMBALTA [Suspect]
     Indication: NEURALGIA
     Dosage: 60 MG, 1 IN 1 DAYS, ORAL
     Route: 048
  6. ZANAFLEX [Suspect]
     Indication: MUSCLE SPASTICITY
     Dosage: 2 MG, 2 IN 1 DAYS, ORAL
     Route: 048
  7. PREDNISONE TAB [Suspect]
     Indication: CONDITION AGGRAVATED
     Dosage: 60 MG, 1 IN 1 DAYS, ORAL
     Route: 048
     Dates: start: 20080801
  8. PREDNISONE TAB [Suspect]
     Indication: MULTIPLE SCLEROSIS
     Dosage: 60 MG, 1 IN 1 DAYS, ORAL
     Route: 048
     Dates: start: 20080801
  9. MECLIZINE [Concomitant]

REACTIONS (6)
  - ASTHENIA [None]
  - BLOOD POTASSIUM DECREASED [None]
  - DISORIENTATION [None]
  - HYPOTENSION [None]
  - MALAISE [None]
  - TREMOR [None]
